FAERS Safety Report 9259520 (Version 1)
Quarter: 2013Q2

REPORT INFORMATION
  Report Type: Spontaneous
  Country: US (occurrence: US)
  Receive Date: 20130429
  Receipt Date: 20130429
  Transmission Date: 20140414
  Serious: No
  Sender: FDA-Public Use
  Company Number: US-009507513-1304USA015156

PATIENT
  Age: 16 Year
  Sex: Male

DRUGS (1)
  1. CLARITIN [Suspect]
     Dosage: UNK
     Route: 048
     Dates: start: 20130315

REACTIONS (1)
  - Drug ineffective [Unknown]
